FAERS Safety Report 7592524-3 (Version None)
Quarter: 2011Q3

REPORT INFORMATION
  Report Type: 
  Country: None (occurrence: None)
  Receive Date: 20110706
  Receipt Date: 20110624
  Transmission Date: 20111222
  Serious: No
  Sender: FDA-Public Use
  Company Number: US-ELI_LILLY_AND_COMPANY-US201104001914

PATIENT
  Age: 61 Year
  Sex: Male
  Weight: 71.655 kg

DRUGS (9)
  1. ADCIRCA [Suspect]
     Indication: PULMONARY ARTERIAL HYPERTENSION
     Dosage: 20 MG, QD
     Route: 048
  2. REMODULIN [Concomitant]
     Dosage: 1 DF, UNKNOWN
     Dates: start: 20050201
  3. OXYGEN [Concomitant]
  4. COUMADIN [Concomitant]
  5. LASIX [Concomitant]
  6. APAP TAB [Concomitant]
  7. ASCORBIC ACID [Concomitant]
  8. NEXAVAR [Concomitant]
  9. ALLEGRA [Concomitant]

REACTIONS (4)
  - FLUSHING [None]
  - TACHYCARDIA [None]
  - DIARRHOEA [None]
  - PAIN IN JAW [None]
